FAERS Safety Report 4979283-5 (Version None)
Quarter: 2006Q2

REPORT INFORMATION
  Report Type: 
  Country: None (occurrence: None)
  Receive Date: 20060421
  Receipt Date: 20050930
  Transmission Date: 20061013
  Serious: Yes (Hospitalization, Other)
  Sender: FDA-Public Use
  Company Number: US-MERCK-0510USA01141

PATIENT
  Age: 74 Year
  Sex: Male
  Weight: 98 kg

DRUGS (9)
  1. VIOXX [Suspect]
     Indication: PAIN
     Route: 048
     Dates: end: 20001008
  2. VIOXX [Suspect]
     Route: 048
     Dates: start: 20010103
  3. NORVASC [Concomitant]
     Route: 048
  4. FLEXERIL [Concomitant]
     Route: 048
  5. FUROSEMIDE [Concomitant]
     Route: 048
  6. PRAZOSIN-BC [Concomitant]
     Route: 048
  7. PRILOSEC [Concomitant]
     Route: 048
  8. LOTREL [Concomitant]
     Route: 065
     Dates: end: 20001008
  9. KEFLEX [Concomitant]
     Route: 065

REACTIONS (25)
  - CARDIOVASCULAR DISORDER [None]
  - CHOLELITHIASIS [None]
  - CHRONIC OBSTRUCTIVE PULMONARY DISEASE [None]
  - CORONARY ARTERY DISEASE [None]
  - DEHYDRATION [None]
  - DIABETES MELLITUS NON-INSULIN-DEPENDENT [None]
  - DIABETIC NEPHROPATHY [None]
  - DYSPHONIA [None]
  - GASTRIC ULCER [None]
  - GOUT [None]
  - HAEMATOCHEZIA [None]
  - HYPERGLYCAEMIA [None]
  - HYPERKALAEMIA [None]
  - HYPONATRAEMIA [None]
  - HYPOVOLAEMIA [None]
  - IRON DEFICIENCY ANAEMIA [None]
  - LOBAR PNEUMONIA [None]
  - MYOCARDIAL INFARCTION [None]
  - PNEUMONIA [None]
  - PROSTATE CANCER [None]
  - PROSTATE EXAMINATION ABNORMAL [None]
  - PROSTATIC OBSTRUCTION [None]
  - RENAL FAILURE [None]
  - RENAL FAILURE CHRONIC [None]
  - SINUS CONGESTION [None]
